FAERS Safety Report 20489572 (Version 1)
Quarter: 2022Q1

REPORT INFORMATION
  Report Type: Spontaneous
  Country: US (occurrence: US)
  Receive Date: 20220218
  Receipt Date: 20220218
  Transmission Date: 20220423
  Serious: No
  Sender: FDA-Public Use
  Company Number: US-GALDERMA-US2022000949

PATIENT

DRUGS (3)
  1. PROACTIV MD ADAPALENE ACNE TREATMENT [Suspect]
     Active Substance: ADAPALENE
     Indication: Acne
     Dosage: 1 DOSAGE FORM, ONCE
     Route: 061
     Dates: start: 2021, end: 2021
  2. PROACTIV MD DAILY OIL CONTROL SPF 30 [Suspect]
     Active Substance: AVOBENZONE\OCTISALATE\OCTOCRYLENE
     Indication: Acne
     Dosage: 1 DOSAGE FORM, ONCE
     Route: 061
     Dates: start: 2021, end: 2021
  3. COSMETICS [Concomitant]
     Active Substance: COSMETICS
     Indication: Acne
     Dosage: 1 DOSAGE FORM, ONCE
     Route: 061
     Dates: start: 2021, end: 2021

REACTIONS (3)
  - Erythema [Recovered/Resolved]
  - Skin irritation [Recovered/Resolved]
  - Skin burning sensation [Recovered/Resolved]

NARRATIVE: CASE EVENT DATE: 20210101
